FAERS Safety Report 5383249-3 (Version None)
Quarter: 2007Q3

REPORT INFORMATION
  Report Type: 
  Country: None (occurrence: None)
  Receive Date: 20070705
  Receipt Date: 20070627
  Transmission Date: 20080115
  Serious: Yes (Death)
  Sender: FDA-Public Use
  Company Number: 158016ISR

PATIENT
  Age: 43 Year
  Sex: Male

DRUGS (2)
  1. SERTRALINE [Suspect]
     Dosage: 50 MG (50 MG, 1 IN 1 D) ORAL
     Route: 048
     Dates: start: 20060701
  2. CLOZAPINE [Suspect]
     Indication: SCHIZOPHRENIA
     Dosage: 450 MG (450 MG, 1 IN 1 D) ORAL
     Route: 048
     Dates: start: 20020929

REACTIONS (2)
  - ALCOHOLISM [None]
  - ANTIPSYCHOTIC DRUG LEVEL INCREASED [None]
